FAERS Safety Report 8579224-8 (Version None)
Quarter: 2012Q3

REPORT INFORMATION
  Report Type: 
  Country: None (occurrence: None)
  Receive Date: 20120808
  Receipt Date: 20120724
  Transmission Date: 20120928
  Serious: Yes (Other)
  Sender: FDA-Public Use
  Company Number: CA-ROCHE-1096066

PATIENT
  Sex: Female

DRUGS (3)
  1. XOLAIR [Suspect]
     Route: 058
     Dates: start: 20110615
  2. XOLAIR [Suspect]
     Indication: ASTHMA
     Route: 058
     Dates: start: 20070101
  3. XOLAIR [Suspect]
     Dates: start: 20080601

REACTIONS (3)
  - MIGRAINE [None]
  - MALAISE [None]
  - DYSPNOEA [None]
